FAERS Safety Report 4992922-8 (Version None)
Quarter: 2006Q1

REPORT INFORMATION
  Report Type: 
  Country: None (occurrence: None)
  Receive Date: 20060315
  Receipt Date: 20060105
  Transmission Date: 20060701
  Serious: No
  Sender: FDA-Public Use
  Company Number: 2005-BP-21696BP

PATIENT
  Age: 54 Year
  Sex: Female

DRUGS (2)
  1. SPIRIVA [Suspect]
     Dosage: (18 MCG),IH
  2. SPIRIVA [Suspect]

REACTIONS (2)
  - DYSGEUSIA [None]
  - DYSPNOEA EXACERBATED [None]
